FAERS Safety Report 17173727 (Version 1)
Quarter: 2019Q4

REPORT INFORMATION
  Report Type: Spontaneous
  Country: US (occurrence: US)
  Receive Date: 20191218
  Receipt Date: 20191218
  Transmission Date: 20200122
  Serious: No
  Sender: FDA-Public Use
  Company Number: None

PATIENT
  Age: 69 Year
  Sex: Female
  Weight: 38.93 kg

DRUGS (3)
  1. BORTEZOMIB. [Concomitant]
     Active Substance: BORTEZOMIB
     Dates: start: 20171205
  2. DARATUMUMAB [Suspect]
     Active Substance: DARATUMUMAB
     Indication: PLASMA CELL MYELOMA
     Dosage: ?          OTHER FREQUENCY:WEEKLY X 9 DOSES;?
     Route: 042
     Dates: start: 20191024
  3. DARATUMUMAB [Suspect]
     Active Substance: DARATUMUMAB

REACTIONS (4)
  - Back pain [None]
  - Hypertension [None]
  - Sensory disturbance [None]
  - Rhinorrhoea [None]

NARRATIVE: CASE EVENT DATE: 20191024
